FAERS Safety Report 8290368-0 (Version None)
Quarter: 2012Q2

REPORT INFORMATION
  Report Type: 
  Country: None (occurrence: None)
  Receive Date: 20120412
  Receipt Date: 20120412
  Transmission Date: 20120825
  Serious: Yes (Other)
  Sender: FDA-Public Use
  Company Number: None

PATIENT
  Age: 60 Year
  Sex: Female
  Weight: 68.0396 kg

DRUGS (1)
  1. LISTERINE AGENT COOL BLUE GLACIER MINT (ORAL CARE PRODUCTS) LIQUID [Suspect]
     Indication: DENTAL DISORDER PROPHYLAXIS
     Dosage: 1 IN 1 DAY, ORAL
     Route: 048
     Dates: start: 20120323, end: 20120323

REACTIONS (3)
  - FACE OEDEMA [None]
  - PHARYNGEAL OEDEMA [None]
  - SWOLLEN TONGUE [None]
